FAERS Safety Report 14551670 (Version 1)
Quarter: 2018Q1

REPORT INFORMATION
  Report Type: Report from Study
  Country: US (occurrence: US)
  Receive Date: 20180220
  Receipt Date: 20180220
  Transmission Date: 20180509
  Serious: No
  Sender: FDA-Public Use
  Company Number: US-IPSEN BIOPHARMACEUTICALS, INC.-2017-10954

PATIENT
  Sex: Male
  Weight: 74.8 kg

DRUGS (7)
  1. DYSPORT [Suspect]
     Active Substance: ABOBOTULINUMTOXINA
     Indication: DIPLEGIA
     Dosage: 1000 UNITS
     Route: 030
     Dates: start: 20170918, end: 20170918
  2. BACLOFEN. [Concomitant]
     Active Substance: BACLOFEN
  3. CENTRUM [Concomitant]
     Active Substance: VITAMINS
  4. DENTA 5000 PLUS [Concomitant]
     Active Substance: SODIUM FLUORIDE
  5. FLUCONAZOLE. [Concomitant]
     Active Substance: FLUCONAZOLE
  6. ALLEGRA [Concomitant]
     Active Substance: FEXOFENADINE HYDROCHLORIDE
  7. ASPIRIN. [Concomitant]
     Active Substance: ASPIRIN

REACTIONS (6)
  - Dizziness [Unknown]
  - Neck pain [Unknown]
  - Posture abnormal [Unknown]
  - Arthralgia [Unknown]
  - Hypoaesthesia [Unknown]
  - Muscle spasms [Unknown]

NARRATIVE: CASE EVENT DATE: 2017
